FAERS Safety Report 5619518-9 (Version None)
Quarter: 2008Q1

REPORT INFORMATION
  Report Type: 
  Country: None (occurrence: None)
  Receive Date: 20080205
  Receipt Date: 20080205
  Transmission Date: 20080703
  Serious: Yes (Hospitalization, Disabling)
  Sender: FDA-Public Use
  Company Number: None

PATIENT
  Age: 70 Year
  Sex: Male
  Weight: 74.8435 kg

DRUGS (1)
  1. LEVAQUIN [Suspect]
     Indication: SINUSITIS
     Dosage: ONE 500 MG TABLET ONE PER DAY PO
     Route: 048
     Dates: start: 20071115, end: 20071119

REACTIONS (2)
  - INJURY [None]
  - TENDON RUPTURE [None]
